FAERS Safety Report 7045347-8 (Version None)
Quarter: 2010Q3

REPORT INFORMATION
  Report Type: 
  Country: None (occurrence: None)
  Receive Date: 20100929
  Receipt Date: 20100722
  Transmission Date: 20110219
  Serious: No
  Sender: FDA-Public Use
  Company Number: US-WYE-H16490210

PATIENT
  Age: 51 Year
  Sex: Female
  Weight: 101.24 kg

DRUGS (7)
  1. PRISTIQ [Suspect]
     Indication: DEPRESSION
     Dosage: 50 MG 1X PER 1 DAY, ORAL
     Route: 048
     Dates: start: 20100701, end: 20100725
  2. GEMFIBROZIL [Concomitant]
  3. DILTIAZEM [Concomitant]
  4. PLAVIX [Concomitant]
  5. CENTRUM (MULTIVITAMIN/MULTIMINERAL) [Concomitant]
  6. FISH OIL, HYDROGENATED (FISH OIL, HYDROGENATED) [Concomitant]
  7. POTASSIUM(POTASSIUM) [Concomitant]

REACTIONS (4)
  - DIZZINESS [None]
  - HEADACHE [None]
  - HYPERHIDROSIS [None]
  - NAUSEA [None]
